FAERS Safety Report 20086427 (Version 2)
Quarter: 2021Q4

REPORT INFORMATION
  Report Type: Report from Study
  Country: FR (occurrence: FR)
  Receive Date: 20211118
  Receipt Date: 20211125
  Transmission Date: 20220303
  Serious: Yes (Hospitalization)
  Sender: FDA-Public Use
  Company Number: FR-PFIZER INC-202101546426

PATIENT
  Age: 61 Year
  Sex: Male

DRUGS (3)
  1. TALAZOPARIB [Suspect]
     Active Substance: TALAZOPARIB
     Indication: Transitional cell carcinoma
     Dosage: 1 MG, DAILY
     Route: 048
     Dates: start: 20210730, end: 20210831
  2. TALAZOPARIB [Suspect]
     Active Substance: TALAZOPARIB
     Dosage: 0.75 MG, DAILY
     Route: 048
     Dates: start: 20210901, end: 20211028
  3. AVELUMAB [Suspect]
     Active Substance: AVELUMAB
     Indication: Transitional cell carcinoma
     Dosage: 800 MG, PER EVERY DAY 1 AND 15 OF 28 DAYS-CYCLE
     Route: 041
     Dates: start: 20210730, end: 20211015

REACTIONS (1)
  - Acute kidney injury [Recovered/Resolved]

NARRATIVE: CASE EVENT DATE: 20211028
